FAERS Safety Report 4372833-1 (Version None)
Quarter: 2004Q2

REPORT INFORMATION
  Report Type: 
  Country: None (occurrence: None)
  Receive Date: 20040608
  Receipt Date: 20040527
  Transmission Date: 20050107
  Serious: Yes (Hospitalization)
  Sender: FDA-Public Use
  Company Number: NO-BRISTOL-MYERS SQUIBB COMPANY-12597506

PATIENT
  Age: 63 Year
  Sex: Male

DRUGS (9)
  1. DICLOCIL [Suspect]
     Indication: SKIN ULCER
     Dosage: DURATION - FOR SOME WEEKS
     Route: 048
  2. PRAVACHOL [Concomitant]
  3. SELO-ZOK [Concomitant]
  4. ALBYL-E [Concomitant]
  5. TRIATEC [Concomitant]
  6. SAROTEX [Concomitant]
  7. NEORAL [Concomitant]
  8. INSULATARD NPH HUMAN [Concomitant]
     Dosage: DOSE VALUE 18 + 30 IU
  9. ACTRAPID [Concomitant]
     Dosage: DOSE VALUE 8-10-10-10 IU BEFORE MEALS

REACTIONS (3)
  - DIARRHOEA [None]
  - ENTEROCOLITIS [None]
  - RENAL FAILURE ACUTE [None]
